FAERS Safety Report 21625285 (Version 2)
Quarter: 2023Q1

REPORT INFORMATION
  Report Type: Spontaneous
  Country: CA (occurrence: CA)
  Receive Date: 20221122
  Receipt Date: 20230317
  Transmission Date: 20230418
  Serious: Yes (Other)
  Sender: FDA-Public Use
  Company Number: CA-SAMSUNG BIOEPIS-SB-2022-22774

PATIENT
  Age: 64 Year
  Sex: Female
  Weight: 61 kg

DRUGS (2)
  1. INFLIXIMAB [Suspect]
     Active Substance: INFLIXIMAB
     Indication: Colitis ulcerative
     Route: 042
  2. INFLIXIMAB [Suspect]
     Active Substance: INFLIXIMAB
     Route: 042

REACTIONS (4)
  - Cytomegalovirus infection [Not Recovered/Not Resolved]
  - Myalgia [Not Recovered/Not Resolved]
  - Infusion related reaction [Not Recovered/Not Resolved]
  - Drug specific antibody present [Not Recovered/Not Resolved]
